FAERS Safety Report 5371867-8 (Version None)
Quarter: 2007Q2

REPORT INFORMATION
  Report Type: 
  Country: None (occurrence: None)
  Receive Date: 20070627
  Receipt Date: 20070618
  Transmission Date: 20071010
  Serious: Yes (Other)
  Sender: FDA-Public Use
  Company Number: US-JNJFOC-20070604529

PATIENT
  Age: 18 Year
  Sex: Female

DRUGS (1)
  1. ORTHO TRI-CYCLEN [Suspect]
     Indication: CONTRACEPTION
     Route: 048

REACTIONS (4)
  - ABNORMAL BEHAVIOUR [None]
  - DEHYDROEPIANDROSTERONE INCREASED [None]
  - DYSPHONIA [None]
  - WEIGHT INCREASED [None]
